FAERS Safety Report 5134615-2 (Version None)
Quarter: 2006Q4

REPORT INFORMATION
  Report Type: 
  Country: None (occurrence: None)
  Receive Date: 20061025
  Receipt Date: 20061023
  Transmission Date: 20070319
  Serious: Yes (Other)
  Sender: FDA-Public Use
  Company Number: US-GLAXOSMITHKLINE-A0624551A

PATIENT
  Sex: Female

DRUGS (5)
  1. LAMICTAL [Suspect]
     Indication: BIPOLAR DISORDER
     Dosage: 250MG VARIABLE DOSE
     Route: 048
     Dates: start: 20050101
  2. KLONOPIN [Concomitant]
  3. DILTIAZEM HCL [Concomitant]
  4. RANITIDINE [Concomitant]
  5. ZETIA [Concomitant]

REACTIONS (3)
  - SKIN ATROPHY [None]
  - VASODILATATION [None]
  - WEIGHT DECREASED [None]
